FAERS Safety Report 7783966-1 (Version None)
Quarter: 2011Q3

REPORT INFORMATION
  Report Type: 
  Country: None (occurrence: None)
  Receive Date: 20110928
  Receipt Date: 20110606
  Transmission Date: 20111222
  Serious: No
  Sender: FDA-Public Use
  Company Number: US-BAYER-2011-049224

PATIENT
  Age: 85 Year
  Sex: Male
  Weight: 75 kg

DRUGS (4)
  1. ALEVE (CAPLET) [Suspect]
     Indication: ANALGESIC THERAPY
     Dosage: 1 TABLET DAILY
     Route: 048
  2. VITAMIN B-12 [Concomitant]
  3. ASCORBIC ACID [Concomitant]
  4. VITAMIN D [Concomitant]

REACTIONS (1)
  - NO ADVERSE EVENT [None]
